FAERS Safety Report 25931777 (Version 1)
Quarter: 2025Q4

REPORT INFORMATION
  Report Type: Spontaneous
  Country: GB (occurrence: GB)
  Receive Date: 20251016
  Receipt Date: 20251016
  Transmission Date: 20260118
  Serious: Yes (Hospitalization, Other)
  Sender: TEVA
  Company Number: None

PATIENT
  Sex: Female
  Weight: 139 kg

DRUGS (9)
  1. CLINDAMYCIN [Suspect]
     Active Substance: CLINDAMYCIN
     Indication: Cellulitis
     Route: 042
     Dates: start: 20250906, end: 20250912
  2. TRAMADOL [Concomitant]
     Active Substance: TRAMADOL
     Indication: Product used for unknown indication
  3. POTASSIUM BICARBONATE\POTASSIUM CHLORIDE [Concomitant]
     Active Substance: POTASSIUM BICARBONATE\POTASSIUM CHLORIDE
     Indication: Product used for unknown indication
  4. FEXOFENADINE [Concomitant]
     Active Substance: FEXOFENADINE HYDROCHLORIDE
     Indication: Product used for unknown indication
  5. WARFARIN [Concomitant]
     Active Substance: WARFARIN
     Indication: Product used for unknown indication
  6. LACTULOSE [Concomitant]
     Active Substance: LACTULOSE
     Indication: Product used for unknown indication
  7. TEICOPLANIN [Suspect]
     Active Substance: TEICOPLANIN
     Indication: Cellulitis
     Dosage: AS LOADING DOSE
     Route: 042
     Dates: start: 20250908, end: 20250912
  8. ACETAMINOPHEN [Concomitant]
     Active Substance: ACETAMINOPHEN
     Indication: Product used for unknown indication
  9. CARBOXYMETHYLCELLULOSE [Concomitant]
     Active Substance: CARBOXYMETHYLCELLULOSE
     Indication: Product used for unknown indication

REACTIONS (6)
  - Urticaria [Not Recovered/Not Resolved]
  - Swelling face [Unknown]
  - Pruritus [Unknown]
  - Rash erythematous [Unknown]
  - Dyspnoea [Unknown]
  - Blister [Unknown]

NARRATIVE: CASE EVENT DATE: 20250912
